FAERS Safety Report 14636309 (Version 1)
Quarter: 2018Q1

REPORT INFORMATION
  Report Type: Report from Study
  Country: ES (occurrence: ES)
  Receive Date: 20180314
  Receipt Date: 20180314
  Transmission Date: 20180509
  Serious: Yes (Life-Threatening, Hospitalization)
  Sender: FDA-Public Use
  Company Number: ES-TEVA-2018-ES-867336

PATIENT
  Age: 53 Year
  Sex: Male

DRUGS (4)
  1. VALGANCICLOVIR. [Suspect]
     Active Substance: VALGANCICLOVIR
     Indication: PROPHYLAXIS
     Route: 048
     Dates: start: 201509, end: 20151211
  2. CELLCEPT 500 MG, 50 TABLETS [Concomitant]
     Indication: LIVER TRANSPLANT
     Route: 048
     Dates: start: 201509
  3. SULFAMETOXAZOL + TRIMETOPRIMA [Concomitant]
     Active Substance: SULFAMETHOXAZOLE\TRIMETHOPRIM
     Indication: PROPHYLAXIS
     Route: 048
     Dates: start: 201509, end: 20151211
  4. ADVAGRAF 5 MG 30 HARD CAPSULES OF PROLONGED RELEASE, 30 CAPSULES [Concomitant]
     Indication: SMALL-FOR-SIZE LIVER SYNDROME
     Route: 048
     Dates: start: 201509

REACTIONS (1)
  - Agranulocytosis [Recovered/Resolved]

NARRATIVE: CASE EVENT DATE: 20151208
